FAERS Safety Report 5209992-4 (Version None)
Quarter: 2006Q4

REPORT INFORMATION
  Report Type: 
  Country: None (occurrence: None)
  Receive Date: 20061127
  Receipt Date: 20060727
  Transmission Date: 20070319
  Serious: Yes (Hospitalization)
  Sender: FDA-Public Use
  Company Number: 2006BH012284

PATIENT
  Age: 63 Year
  Sex: Male
  Weight: 62.5964 kg

DRUGS (1)
  1. DIANEAL [Suspect]
     Indication: RENAL FAILURE CHRONIC
     Dosage: 6 L;  IP
     Route: 033

REACTIONS (3)
  - CATHETER RELATED INFECTION [None]
  - CORYNEBACTERIUM INFECTION [None]
  - PERITONITIS BACTERIAL [None]
